FAERS Safety Report 5262316-9 (Version None)
Quarter: 2007Q1

REPORT INFORMATION
  Report Type: 
  Country: None (occurrence: None)
  Receive Date: 20070312
  Receipt Date: 20070226
  Transmission Date: 20070707
  Serious: Yes (Hospitalization)
  Sender: FDA-Public Use
  Company Number: PHBS2007BR03649

PATIENT
  Age: 63 Year
  Sex: Male
  Weight: 70 kg

DRUGS (2)
  1. TEGRETOL [Suspect]
     Indication: FACIAL PAIN
     Dosage: 200 MG/DAY
     Route: 048
     Dates: start: 20070214, end: 20070225
  2. ANTIHYPERTENSIVES [Concomitant]

REACTIONS (4)
  - INFECTION [None]
  - LABORATORY TEST ABNORMAL [None]
  - RASH MACULAR [None]
  - SWELLING [None]
